FAERS Safety Report 21024509 (Version 7)
Quarter: 2022Q3

REPORT INFORMATION
  Report Type: Report from Study
  Country: CN (occurrence: CN)
  Receive Date: 20220629
  Receipt Date: 20220929
  Transmission Date: 20221027
  Serious: Yes (Hospitalization, Other)
  Sender: FDA-Public Use
  Company Number: CN-BRISTOL-MYERS SQUIBB COMPANY-2022-063586

PATIENT
  Age: 68 Year
  Sex: Female
  Weight: 62 kg

DRUGS (12)
  1. IPILIMUMAB [Suspect]
     Active Substance: IPILIMUMAB
     Indication: Non-small cell lung cancer
     Dosage: MOST RECENT DOSE WAS ON 25-MAR-2022
     Route: 042
     Dates: start: 20220210, end: 20220325
  2. CARBOPLATIN [Suspect]
     Active Substance: CARBOPLATIN
     Indication: Non-small cell lung cancer
     Dosage: MOST RECENT DOSE WAS ON 28-DEC-2021
     Route: 065
     Dates: start: 20211207, end: 20211228
  3. PEMETREXED DISODIUM [Suspect]
     Active Substance: PEMETREXED DISODIUM
     Indication: Non-small cell lung cancer
     Dosage: MOST RECENT DOSE WAS ON 28-DEC-2021
     Route: 065
     Dates: start: 20211207, end: 20211228
  4. MULTIVITAMIN [ASCORBIC ACID;CALCIUM PANTOTHENATE;CYANOCOBALAMIN;ERGOCA [Concomitant]
     Indication: Product used for unknown indication
     Dosage: MULTIVITAMIN TABLETS (WITH FOLIC ACID)
     Route: 048
     Dates: start: 20211204
  5. MULTIVITAMIN [ASCORBIC ACID;CALCIUM PANTOTHENATE;CYANOCOBALAMIN;ERGOCA [Concomitant]
     Dosage: MULTIVITAMIN TABLETS (WITH FOLIC ACID)
     Route: 048
     Dates: start: 20211204
  6. VERO CELL [Concomitant]
     Indication: Prophylaxis
     Route: 030
     Dates: start: 20210413
  7. VERO CELL [Concomitant]
     Route: 030
     Dates: start: 20210510
  8. MEDROL [Concomitant]
     Active Substance: METHYLPREDNISOLONE
     Indication: Radiation pneumonitis
     Route: 048
     Dates: start: 20220602, end: 20220608
  9. MEDROL [Concomitant]
     Active Substance: METHYLPREDNISOLONE
     Route: 048
     Dates: start: 20220609, end: 20220615
  10. MEDROL [Concomitant]
     Active Substance: METHYLPREDNISOLONE
     Route: 048
     Dates: start: 20220617, end: 20220621
  11. CEFDINIR [Concomitant]
     Active Substance: CEFDINIR
     Indication: Radiation pneumonitis
     Route: 048
     Dates: start: 20220617, end: 20220620
  12. AZITHROMYCIN [Concomitant]
     Active Substance: AZITHROMYCIN
     Indication: Radiation pneumonitis
     Route: 048
     Dates: start: 20220617, end: 20220620

REACTIONS (2)
  - Radiation pneumonitis [Recovered/Resolved with Sequelae]
  - Pneumonia bacterial [Recovered/Resolved with Sequelae]

NARRATIVE: CASE EVENT DATE: 20220621
